FAERS Safety Report 7063495-3 (Version None)
Quarter: 2010Q4

REPORT INFORMATION
  Report Type: 
  Country: None (occurrence: None)
  Receive Date: 20101026
  Receipt Date: 20100409
  Transmission Date: 20110411
  Serious: No
  Sender: FDA-Public Use
  Company Number: US-ABBOTT-10P-163-0633982-00

PATIENT
  Sex: Female
  Weight: 96.702 kg

DRUGS (5)
  1. LUPRON DEPOT [Suspect]
     Indication: ENDOMETRIOSIS
     Route: 030
     Dates: start: 20100316
  2. SEROQUEL [Concomitant]
     Indication: DEPRESSION
  3. GEODON [Concomitant]
     Indication: DEPRESSION
  4. EFFEXOR [Concomitant]
     Indication: DEPRESSION
  5. BIRTH CONTROL MEDICATION [Concomitant]
     Indication: ENDOMETRIOSIS
     Dates: start: 20100101

REACTIONS (2)
  - ENDOMETRIOSIS [None]
  - MUSCULOSKELETAL PAIN [None]
